FAERS Safety Report 20059119 (Version 4)
Quarter: 2022Q1

REPORT INFORMATION
  Report Type: Other
  Country: US (occurrence: None)
  Receive Date: 20211111
  Receipt Date: 20220117
  Transmission Date: 20220423
  Serious: Yes (Hospitalization, Other)
  Sender: FDA-Public Use
  Company Number: US-ROCHE-2947029

PATIENT
  Sex: Male
  Weight: 99.880 kg

DRUGS (4)
  1. OCREVUS [Suspect]
     Active Substance: OCRELIZUMAB
     Indication: Multiple sclerosis relapse
     Dosage: INFUSE 300 MG ON DAY 1 AND DAY 15 THEN 600 MG IN EVERY 6 MONTHS.?DOT: 04/AUG/2021, 26/JAN/2021,27/JU
     Route: 042
     Dates: start: 202007
  2. VITAMIN D3 [Concomitant]
     Active Substance: CHOLECALCIFEROL
     Indication: Multiple sclerosis
     Route: 048
     Dates: start: 202001
  3. AMANTADINE [Concomitant]
     Active Substance: AMANTADINE
     Indication: Multiple sclerosis
     Dates: start: 202108
  4. BENZONATATE [Concomitant]
     Active Substance: BENZONATATE
     Indication: Cough
     Route: 048
     Dates: start: 20211026

REACTIONS (13)
  - COVID-19 pneumonia [Recovered/Resolved]
  - Pulmonary fibrosis [Not Recovered/Not Resolved]
  - Fatigue [Unknown]
  - Urinary tract disorder [Not Recovered/Not Resolved]
  - Prostatomegaly [Not Recovered/Not Resolved]
  - Acute respiratory failure [Recovering/Resolving]
  - Dyspnoea [Recovered/Resolved]
  - Weight decreased [Unknown]
  - Muscle atrophy [Recovered/Resolved]
  - Cough [Not Recovered/Not Resolved]
  - Sepsis [Recovered/Resolved]
  - Renal failure [Recovered/Resolved]
  - Asthenia [Unknown]

NARRATIVE: CASE EVENT DATE: 20210101
